FAERS Safety Report 14592661 (Version 1)
Quarter: 2018Q1

REPORT INFORMATION
  Report Type: Report from Study
  Country: BR (occurrence: BR)
  Receive Date: 20180302
  Receipt Date: 20180302
  Transmission Date: 20180509
  Serious: Yes (Hospitalization)
  Sender: FDA-Public Use
  Company Number: PHHY2018BR033771

PATIENT
  Age: 91 Year
  Sex: Female

DRUGS (6)
  1. BRIMONIDINE [Suspect]
     Active Substance: BRIMONIDINE TARTRATE
     Indication: GLAUCOMA
     Dosage: UNK UNK, BID
     Route: 065
  2. DUOTRAVATAN [BAC] [Suspect]
     Active Substance: TIMOLOL MALEATE\TRAVOPROST
     Indication: INTRAOCULAR PRESSURE TEST
     Route: 065
  3. DUOTRAVATAN [BAC] [Suspect]
     Active Substance: TIMOLOL MALEATE\TRAVOPROST
     Indication: GLAUCOMA
  4. TIMOLOL. [Suspect]
     Active Substance: TIMOLOL
     Indication: GLAUCOMA
     Dosage: UNK UNK, BID
     Route: 065
  5. COMBIGAN [Concomitant]
     Active Substance: BRIMONIDINE TARTRATE\TIMOLOL MALEATE
     Indication: PRODUCT USED FOR UNKNOWN INDICATION
     Route: 065
  6. HYABAK [Concomitant]
     Active Substance: HYALURONATE SODIUM
     Indication: PRODUCT USED FOR UNKNOWN INDICATION
     Route: 065

REACTIONS (7)
  - Aphasia [Unknown]
  - Cerebrovascular accident [Not Recovered/Not Resolved]
  - Cerebral thrombosis [Recovered/Resolved with Sequelae]
  - Weight decreased [Unknown]
  - Mental disorder [Recovered/Resolved with Sequelae]
  - Eating disorder [Unknown]
  - Drooling [Not Recovered/Not Resolved]

NARRATIVE: CASE EVENT DATE: 201610
